FAERS Safety Report 19233621 (Version 3)
Quarter: 2021Q3

REPORT INFORMATION
  Report Type: Spontaneous
  Country: US (occurrence: US)
  Receive Date: 20210507
  Receipt Date: 20210714
  Transmission Date: 20211014
  Serious: Yes (Other)
  Sender: FDA-Public Use
  Company Number: US-SK LIFE SCIENCE, INC-SKPVG-2020-000270

PATIENT

DRUGS (17)
  1. XCOPRI [Suspect]
     Active Substance: CENOBAMATE
     Indication: SEIZURE
     Dosage: 12.5 MILLIGRAM, QD
     Route: 048
     Dates: start: 20200716, end: 20200729
  2. XCOPRI [Suspect]
     Active Substance: CENOBAMATE
     Dosage: 25 MILLIGRAM
     Route: 048
     Dates: start: 20200730, end: 20200812
  3. XCOPRI [Suspect]
     Active Substance: CENOBAMATE
     Dosage: 200 MILLIGRAM, QD
     Route: 048
     Dates: start: 20201019
  4. XCOPRI [Suspect]
     Active Substance: CENOBAMATE
     Dosage: 100 MILLIGRAM
     Route: 048
     Dates: start: 20200827, end: 20200909
  5. CLONAZEPAM. [Suspect]
     Active Substance: CLONAZEPAM
     Dosage: 2.5 MG AM, 2.25 MG PM, BID
     Route: 065
  6. XCOPRI [Suspect]
     Active Substance: CENOBAMATE
     Dosage: 250 MILLIGRAM, QD
     Route: 048
  7. KEPPRA [Suspect]
     Active Substance: LEVETIRACETAM
     Dosage: 500 MG IN AM AND 750 MG IN PM
     Route: 065
  8. XCOPRI [Suspect]
     Active Substance: CENOBAMATE
     Dosage: 150 MILLIGRAM, QD, ONCE DAILY AT LUNCH
     Route: 048
     Dates: start: 20200910, end: 20200923
  9. CLONAZEPAM. [Suspect]
     Active Substance: CLONAZEPAM
     Indication: LETHARGY
     Dosage: 1 MILLIGRAM, BID
     Route: 065
  10. VITAMIN D3 [Concomitant]
     Active Substance: CHOLECALCIFEROL
     Indication: PRODUCT USED FOR UNKNOWN INDICATION
     Dosage: 2000 IU INTERNATIONAL UNIT(S), QD
     Route: 065
  11. XCOPRI [Suspect]
     Active Substance: CENOBAMATE
     Dosage: 200 MILLIGRAM, QD
     Route: 048
     Dates: start: 20200924
  12. XCOPRI [Suspect]
     Active Substance: CENOBAMATE
     Dosage: 250 MILLIGRAM, ONCE DAILY AT NIGHT
     Route: 048
     Dates: start: 20201106
  13. XCOPRI [Suspect]
     Active Substance: CENOBAMATE
     Dosage: UNK
     Route: 048
     Dates: start: 202101
  14. KEPPRA [Suspect]
     Active Substance: LEVETIRACETAM
     Indication: PRODUCT USED FOR UNKNOWN INDICATION
     Dosage: 500 MG IN AM AND 750 MG IN PM
     Route: 065
  15. MULTIVITAMIN                       /00097801/ [Concomitant]
     Active Substance: VITAMINS
     Indication: PRODUCT USED FOR UNKNOWN INDICATION
     Dosage: MULTIVITAMIN FOR MEN DAILY, QD
     Route: 065
  16. PROTEIN [Concomitant]
     Active Substance: PROTEIN
     Indication: PRODUCT USED FOR UNKNOWN INDICATION
     Dosage: SMOOTHIE EACH MORNING WITH ADDED PROTEIN POWDER
     Route: 065
  17. XCOPRI [Suspect]
     Active Substance: CENOBAMATE
     Dosage: 50 MILLIGRAM
     Route: 048
     Dates: start: 20200813, end: 20200826

REACTIONS (11)
  - Rectal haemorrhage [Not Recovered/Not Resolved]
  - Blood blister [Not Recovered/Not Resolved]
  - Haemorrhoids [Not Recovered/Not Resolved]
  - Constipation [Not Recovered/Not Resolved]
  - Rectal discharge [Not Recovered/Not Resolved]
  - Somnolence [Recovered/Resolved]
  - Lethargy [Recovered/Resolved]
  - Fatigue [Recovered/Resolved]
  - Dysphonia [Recovered/Resolved]
  - Acne [Recovered/Resolved]
  - Steatorrhoea [Not Recovered/Not Resolved]

NARRATIVE: CASE EVENT DATE: 20200828
